FAERS Safety Report 21082087 (Version 2)
Quarter: 2022Q4

REPORT INFORMATION
  Report Type: Report from Study
  Country: PR (occurrence: PR)
  Receive Date: 20220714
  Receipt Date: 20221014
  Transmission Date: 20230113
  Serious: Yes (Other)
  Sender: FDA-Public Use
  Company Number: PR-ABBVIE-22K-131-4465447-00

PATIENT
  Age: 78 Year
  Sex: Female
  Weight: 73.935 kg

DRUGS (6)
  1. HUMIRA [Suspect]
     Active Substance: ADALIMUMAB
     Indication: Rheumatoid arthritis
     Dosage: STRENGTH : 40 MG
     Route: 058
  2. HUMIRA [Suspect]
     Active Substance: ADALIMUMAB
     Dosage: STRENGTH: 40 MG
     Route: 058
  3. TOZINAMERAN [Concomitant]
     Active Substance: TOZINAMERAN
     Indication: COVID-19
     Dosage: 1ST DOSE
     Route: 030
     Dates: start: 202103, end: 202103
  4. TOZINAMERAN [Concomitant]
     Active Substance: TOZINAMERAN
     Indication: COVID-19
     Dosage: THIRD DOSE
     Route: 030
     Dates: start: 202110, end: 202110
  5. TOZINAMERAN [Concomitant]
     Active Substance: TOZINAMERAN
     Indication: COVID-19
     Dosage: SECOND DOSE
     Route: 030
     Dates: start: 202103, end: 202103
  6. HUMIRA [Suspect]
     Active Substance: ADALIMUMAB

REACTIONS (9)
  - Arterial occlusive disease [Not Recovered/Not Resolved]
  - SARS-CoV-2 test positive [Recovering/Resolving]
  - Dysphonia [Recovering/Resolving]
  - Abdominal pain upper [Not Recovered/Not Resolved]
  - Oropharyngeal pain [Recovering/Resolving]
  - Headache [Recovering/Resolving]
  - Pyrexia [Recovering/Resolving]
  - Abdominal pain upper [Recovering/Resolving]
  - Peripheral vein occlusion [Not Recovered/Not Resolved]

NARRATIVE: CASE EVENT DATE: 20220601
